FAERS Safety Report 4318039-3 (Version None)
Quarter: 2004Q1

REPORT INFORMATION
  Report Type: 
  Country: None (occurrence: None)
  Receive Date: 20040317
  Receipt Date: 20040223
  Transmission Date: 20041129
  Serious: Yes (Death, Hospitalization)
  Sender: FDA-Public Use
  Company Number: 200410725FR

PATIENT
  Age: 73 Year
  Sex: Female

DRUGS (14)
  1. ULCAR [Suspect]
     Indication: ULCER
     Route: 048
     Dates: start: 20040203, end: 20040208
  2. FLAGYL [Suspect]
     Indication: CLOSTRIDIUM COLITIS
     Route: 048
     Dates: start: 20040204, end: 20040208
  3. IMOVANE [Suspect]
     Route: 048
     Dates: start: 20040128, end: 20040201
  4. MOTILIUM [Suspect]
     Route: 048
     Dates: start: 20040109, end: 20040208
  5. FRAXIPARINE [Concomitant]
     Route: 058
     Dates: start: 20040109, end: 20040202
  6. MOPRAL [Suspect]
     Route: 042
     Dates: start: 20040202, end: 20040208
  7. MOPRAL [Suspect]
     Route: 048
     Dates: start: 20040205, end: 20040208
  8. LOPRESSOR [Concomitant]
     Route: 048
  9. MODURETIC ^MSD^ [Concomitant]
  10. DOLIPRANE [Concomitant]
     Route: 048
     Dates: start: 20040126
  11. AMOXICILLIN [Concomitant]
     Indication: CLOSTRIDIUM COLITIS
     Route: 048
     Dates: start: 20040205
  12. ZECLAR [Concomitant]
     Indication: CLOSTRIDIUM COLITIS
     Route: 048
     Dates: start: 20040205
  13. PERFALGAN [Concomitant]
     Route: 048
     Dates: start: 20040109, end: 20040110
  14. DI-ANTALVIC [Concomitant]
     Route: 048
     Dates: start: 20040111, end: 20040126

REACTIONS (5)
  - CLOSTRIDIUM COLITIS [None]
  - GASTROINTESTINAL HAEMORRHAGE [None]
  - HAEMOGLOBIN DECREASED [None]
  - STRESS SYMPTOMS [None]
  - THROMBOCYTOPENIA [None]
